FAERS Safety Report 20213843 (Version 1)
Quarter: 2021Q4

REPORT INFORMATION
  Report Type: Spontaneous
  Country: US (occurrence: None)
  Receive Date: 20211221
  Receipt Date: 20211221
  Transmission Date: 20220303
  Serious: No
  Sender: FDA-Public Use
  Company Number: None

PATIENT
  Sex: Male

DRUGS (1)
  1. COSENTYX [Suspect]
     Active Substance: SECUKINUMAB
     Dosage: OTHER FREQUENCY : 28 DAYS;?
     Route: 058
     Dates: start: 20210922

REACTIONS (3)
  - Staphylococcal infection [None]
  - Sepsis [None]
  - Pneumonia [None]
